FAERS Safety Report 19928983 (Version 2)
Quarter: 2021Q4

REPORT INFORMATION
  Report Type: Spontaneous
  Country: US (occurrence: US)
  Receive Date: 20211007
  Receipt Date: 20211027
  Transmission Date: 20220303
  Serious: Yes (Life-Threatening, Hospitalization)
  Sender: FDA-Public Use
  Company Number: US-DRREDDYS-SPO/USA/21/0142329

PATIENT
  Age: 42 Year
  Sex: Male

DRUGS (5)
  1. OLANZAPINE [Suspect]
     Active Substance: OLANZAPINE
     Indication: Schizophrenia
  2. HALOPERIDOL [Concomitant]
     Active Substance: HALOPERIDOL
     Indication: Schizophrenia
  3. ICOSAPENT [Concomitant]
     Active Substance: ICOSAPENT
     Indication: Hypertriglyceridaemia
  4. HALOPERIDOL DECANOATE [Concomitant]
     Active Substance: HALOPERIDOL DECANOATE
     Indication: Schizophrenia
  5. DOCONEXENT [Concomitant]
     Active Substance: DOCONEXENT
     Indication: Hypertriglyceridaemia

REACTIONS (7)
  - Peptostreptococcus infection [Unknown]
  - Lactic acidosis [Unknown]
  - Bacteraemia [Unknown]
  - Pancreatitis necrotising [Not Recovered/Not Resolved]
  - Acute respiratory failure [Unknown]
  - Type 1 diabetes mellitus [Unknown]
  - Blood triglycerides increased [Unknown]
